FAERS Safety Report 13676683 (Version 5)
Quarter: 2017Q3

REPORT INFORMATION
  Report Type: Spontaneous
  Country: US (occurrence: US)
  Receive Date: 20170622
  Receipt Date: 20170831
  Transmission Date: 20171127
  Serious: Yes (Hospitalization)
  Sender: FDA-Public Use
  Company Number: US-PFIZER INC-2017267620

PATIENT
  Age: 76 Year
  Sex: Female
  Weight: 61.22 kg

DRUGS (4)
  1. CURCUMIN [Concomitant]
     Active Substance: CURCUMIN
     Dosage: UNK
  2. TURMERIC [Concomitant]
     Active Substance: HERBALS\TURMERIC
     Indication: TUMOUR PAIN
     Dosage: UNK
  3. LETROZOLE. [Suspect]
     Active Substance: LETROZOLE
     Indication: BREAST CANCER METASTATIC
     Dosage: UNK, DAILY
     Route: 048
     Dates: start: 2016
  4. IBRANCE [Suspect]
     Active Substance: PALBOCICLIB
     Indication: BREAST CANCER METASTATIC
     Dosage: 125 MG, CYCLIC (DAILY FOR 21 DAYS THEN OFF 7 DAYS)
     Route: 048
     Dates: start: 201606

REACTIONS (11)
  - Alopecia [Not Recovered/Not Resolved]
  - White blood cell count decreased [Not Recovered/Not Resolved]
  - Myalgia [Recovering/Resolving]
  - Blood calcium increased [Unknown]
  - Nail growth abnormal [Not Recovered/Not Resolved]
  - Hair texture abnormal [Unknown]
  - Decreased immune responsiveness [Unknown]
  - Onychoclasis [Unknown]
  - Arthralgia [Recovering/Resolving]
  - Red blood cell count decreased [Not Recovered/Not Resolved]
  - Nail disorder [Not Recovered/Not Resolved]

NARRATIVE: CASE EVENT DATE: 2016
